FAERS Safety Report 11744562 (Version 1)
Quarter: 2015Q4

REPORT INFORMATION
  Report Type: Spontaneous
  Country: US (occurrence: US)
  Receive Date: 20151116
  Receipt Date: 20151116
  Transmission Date: 20160304
  Serious: No
  Sender: FDA-Public Use
  Company Number: US-SHIRE-US201515170

PATIENT
  Age: 48 Year
  Sex: Female

DRUGS (1)
  1. ADDERALL XR [Suspect]
     Active Substance: AMPHETAMINE ASPARTATE\AMPHETAMINE SULFATE\DEXTROAMPHETAMINE SACCHARATE\DEXTROAMPHETAMINE SULFATE
     Indication: PRODUCT USED FOR UNKNOWN INDICATION
     Dosage: 40 MG (30 MG + 10 MG CAPSULE), 1X/DAY:QD
     Route: 048
     Dates: start: 2015

REACTIONS (2)
  - Prescribed overdose [Unknown]
  - Hypersensitivity [Unknown]

NARRATIVE: CASE EVENT DATE: 2015
